FAERS Safety Report 25484471 (Version 1)
Quarter: 2025Q2

REPORT INFORMATION
  Report Type: Spontaneous
  Country: AU (occurrence: None)
  Receive Date: 20250626
  Receipt Date: 20250626
  Transmission Date: 20250716
  Serious: Yes (Disabling)
  Sender: FDA-CTU
  Company Number: None

PATIENT
  Age: 31 Year
  Sex: Female

DRUGS (6)
  1. MIRTAZAPINE [Suspect]
     Active Substance: MIRTAZAPINE
  2. CELEXA [Suspect]
     Active Substance: CITALOPRAM HYDROBROMIDE
  3. PRISTIQ EXTENDED-RELEASE [Suspect]
     Active Substance: DESVENLAFAXINE SUCCINATE
  4. LEXAPRO [Suspect]
     Active Substance: ESCITALOPRAM OXALATE
  5. TEMAZEPAM [Suspect]
     Active Substance: TEMAZEPAM
  6. DIAZEPAM [Suspect]
     Active Substance: DIAZEPAM

REACTIONS (18)
  - Migraine [None]
  - Vertigo [None]
  - Anxiety [None]
  - Withdrawal syndrome [None]
  - Brain fog [None]
  - Suicidal ideation [None]
  - Depersonalisation/derealisation disorder [None]
  - Derealisation [None]
  - Nightmare [None]
  - Arthralgia [None]
  - Sciatica [None]
  - Photophobia [None]
  - Hyperacusis [None]
  - Vision blurred [None]
  - Tinnitus [None]
  - Obsessive thoughts [None]
  - Cognitive disorder [None]
  - Pain in extremity [None]

NARRATIVE: CASE EVENT DATE: 20210619
